FAERS Safety Report 25025033 (Version 1)
Quarter: 2025Q1

REPORT INFORMATION
  Report Type: Spontaneous
  Country: US (occurrence: US)
  Receive Date: 20250228
  Receipt Date: 20250228
  Transmission Date: 20250409
  Serious: Yes (Death, Other)
  Sender: GALPHARM INTERNATIONAL
  Company Number: US-PERRIGO-25US002545

PATIENT
  Sex: Male

DRUGS (4)
  1. ACETAMINOPHEN [Suspect]
     Active Substance: ACETAMINOPHEN
     Indication: Intentional overdose
     Route: 048
  2. ALPRAZOLAM [Suspect]
     Active Substance: ALPRAZOLAM
     Indication: Intentional overdose
     Route: 065
  3. CLONAZEPAM [Suspect]
     Active Substance: CLONAZEPAM
     Indication: Intentional overdose
     Route: 065
  4. OXYCODONE [Suspect]
     Active Substance: OXYCODONE
     Indication: Intentional overdose
     Route: 065

REACTIONS (3)
  - Completed suicide [Fatal]
  - Toxicity to various agents [Fatal]
  - Intentional overdose [Fatal]
